FAERS Safety Report 5096947-6 (Version None)
Quarter: 2006Q3

REPORT INFORMATION
  Report Type: 
  Country: None (occurrence: None)
  Receive Date: 20060906
  Receipt Date: 20060814
  Transmission Date: 20061208
  Serious: Yes (Hospitalization)
  Sender: FDA-Public Use
  Company Number: 2006UW16404

PATIENT
  Age: 78 Year
  Sex: Male

DRUGS (2)
  1. ZOLADEX [Suspect]
     Indication: PROSTATE CANCER
     Route: 058
     Dates: start: 20060701
  2. UNKNOWN [Concomitant]
     Indication: HYPERTENSION

REACTIONS (2)
  - DYSLIPIDAEMIA [None]
  - HYPERGLYCAEMIA [None]
